FAERS Safety Report 6848886-5 (Version None)
Quarter: 2010Q3

REPORT INFORMATION
  Report Type: 
  Country: None (occurrence: None)
  Receive Date: 20100716
  Receipt Date: 20071003
  Transmission Date: 20110219
  Serious: No
  Sender: FDA-Public Use
  Company Number: US-PFIZER INC-2007074853

PATIENT
  Sex: Female
  Weight: 70.8 kg

DRUGS (10)
  1. CHANTIX [Suspect]
     Indication: SMOKING CESSATION THERAPY
     Dates: start: 20070822
  2. THYROID TAB [Concomitant]
     Indication: HYPOTHYROIDISM
  3. LISINOPRIL [Concomitant]
     Indication: HYPERTENSION
  4. LIPITOR [Concomitant]
     Indication: BLOOD CHOLESTEROL INCREASED
  5. FUROSEMIDE [Concomitant]
  6. ACCOLATE [Concomitant]
  7. SERETIDE MITE [Concomitant]
  8. OTHER RESPIRATORY SYSTEM PRODUCTS [Concomitant]
  9. DIAZEPAM [Concomitant]
  10. VITAMINS [Concomitant]

REACTIONS (3)
  - CONSTIPATION [None]
  - FATIGUE [None]
  - SENSATION OF HEAVINESS [None]
